FAERS Safety Report 5162712-4 (Version None)
Quarter: 2006Q4

REPORT INFORMATION
  Report Type: 
  Country: None (occurrence: None)
  Receive Date: 20061201
  Receipt Date: 20060919
  Transmission Date: 20070319
  Serious: No
  Sender: FDA-Public Use
  Company Number: S06-USA-03614-01

PATIENT
  Age: 14 Year
  Sex: Male

DRUGS (3)
  1. AUGMENTIN '125' [Suspect]
     Route: 065
     Dates: start: 20060901
  2. LEXAPRO [Suspect]
     Indication: ELECTROLYTE IMBALANCE
     Dosage: 10MG PER DAY
     Route: 048
     Dates: start: 20060831
  3. ATIVAN [Concomitant]
     Indication: INSOMNIA

REACTIONS (2)
  - ABDOMINAL PAIN [None]
  - HEADACHE [None]
